FAERS Safety Report 24028767 (Version 1)
Quarter: 2024Q2

REPORT INFORMATION
  Report Type: Spontaneous
  Country: DE (occurrence: DE)
  Receive Date: 20240628
  Receipt Date: 20240628
  Transmission Date: 20240717
  Serious: Yes (Other)
  Sender: FDA-Public Use
  Company Number: DE-Ascend Therapeutics US, LLC-2158630

PATIENT
  Age: 63 Year
  Sex: Female

DRUGS (5)
  1. ESTROGEL [Suspect]
     Active Substance: ESTRADIOL
     Indication: Night sweats
     Route: 065
     Dates: start: 202108
  2. ESTRADIOL HEMIHYDRATE [Suspect]
     Active Substance: ESTRADIOL HEMIHYDRATE
     Route: 065
     Dates: start: 202108
  3. ASPIRIN [Concomitant]
     Active Substance: ASPIRIN
     Route: 065
  4. PROGESTERONE [Suspect]
     Active Substance: PROGESTERONE
     Route: 065
     Dates: start: 202108
  5. ESTRADIOL HEMIHYDRATE [Suspect]
     Active Substance: ESTRADIOL HEMIHYDRATE
     Route: 065
     Dates: end: 20240520

REACTIONS (9)
  - Lung neoplasm malignant [Recovered/Resolved]
  - Underdose [Unknown]
  - Wrong technique in product usage process [Unknown]
  - Therapeutic product effect decreased [Unknown]
  - Insomnia [Not Recovered/Not Resolved]
  - Weight increased [Not Recovered/Not Resolved]
  - Alopecia [Not Recovered/Not Resolved]
  - Hair texture abnormal [Unknown]
  - Constipation [Not Recovered/Not Resolved]

NARRATIVE: CASE EVENT DATE: 20230101
